FAERS Safety Report 5754800-6 (Version None)
Quarter: 2008Q2

REPORT INFORMATION
  Report Type: 
  Country: None (occurrence: None)
  Receive Date: 20080527
  Receipt Date: 20080513
  Transmission Date: 20081010
  Serious: Yes (Hospitalization)
  Sender: FDA-Public Use
  Company Number: MEDI-0006809

PATIENT
  Age: 8 Month

DRUGS (1)
  1. SYNAGIS [Suspect]

REACTIONS (3)
  - BRONCHIOLITIS [None]
  - INTERCOSTAL RETRACTION [None]
  - WHEEZING [None]
